FAERS Safety Report 13934316 (Version 2)
Quarter: 2017Q3

REPORT INFORMATION
  Report Type: Spontaneous
  Country: RU (occurrence: RU)
  Receive Date: 20170905
  Receipt Date: 20170911
  Transmission Date: 20171127
  Serious: Yes (Hospitalization, Other)
  Sender: FDA-Public Use
  Company Number: RU-ABBVIE-17K-251-2091133-00

PATIENT
  Age: 33 Year
  Sex: Male

DRUGS (8)
  1. OMEPRAZOLE. [Concomitant]
     Active Substance: OMEPRAZOLE
     Indication: ANKYLOSING SPONDYLITIS
     Dates: start: 20170802
  2. ROTOMOX [Concomitant]
     Indication: ANKYLOSING SPONDYLITIS
     Route: 042
     Dates: start: 20170729
  3. FOLIC ACID. [Concomitant]
     Active Substance: FOLIC ACID
     Indication: ANKYLOSING SPONDYLITIS
  4. KETOROL [Concomitant]
     Active Substance: KETOROLAC TROMETHAMINE
     Indication: ANKYLOSING SPONDYLITIS
     Route: 030
     Dates: start: 20170802
  5. HUMIRA [Suspect]
     Active Substance: ADALIMUMAB
     Indication: ANKYLOSING SPONDYLITIS
     Route: 058
     Dates: start: 20160706, end: 201708
  6. LEFLOBACT [Concomitant]
     Indication: PRODUCT USED FOR UNKNOWN INDICATION
     Route: 042
     Dates: start: 20170728, end: 20170728
  7. MELOXAM [Concomitant]
     Indication: ANKYLOSING SPONDYLITIS
  8. PENTOXIFYLLINE. [Concomitant]
     Active Substance: PENTOXIFYLLINE
     Indication: ANKYLOSING SPONDYLITIS
     Route: 042
     Dates: start: 20170802, end: 20170815

REACTIONS (3)
  - Pleural effusion [Recovering/Resolving]
  - Pleurisy [Recovering/Resolving]
  - Pulmonary tuberculosis [Recovering/Resolving]

NARRATIVE: CASE EVENT DATE: 20170728
